FAERS Safety Report 7477509-X (Version None)
Quarter: 2011Q2

REPORT INFORMATION
  Report Type: 
  Country: None (occurrence: None)
  Receive Date: 20110510
  Receipt Date: 20110510
  Transmission Date: 20111010
  Serious: Yes (Other)
  Sender: FDA-Public Use
  Company Number: None

PATIENT
  Age: 27 Year
  Sex: Female
  Weight: 90.7194 kg

DRUGS (6)
  1. VICODIN [Concomitant]
  2. WARFARIN SODIUM [Suspect]
     Indication: PULMONARY EMBOLISM
     Dosage: 3-4MG DAILY PO
     Route: 048
     Dates: start: 20110416, end: 20110505
  3. LABETALOL [Concomitant]
  4. VIT C SUPPLEMENT [Concomitant]
  5. IRON SUPPLEMENT [Concomitant]
  6. ACETAMINOPHEN [Concomitant]

REACTIONS (1)
  - DRUG HYPERSENSITIVITY [None]
